FAERS Safety Report 8560304-8 (Version None)
Quarter: 2012Q3

REPORT INFORMATION
  Report Type: 
  Country: None (occurrence: None)
  Receive Date: 20120802
  Receipt Date: 20120723
  Transmission Date: 20120928
  Serious: Yes (Other)
  Sender: FDA-Public Use
  Company Number: JP-ELI_LILLY_AND_COMPANY-JP201204001484

PATIENT
  Age: 65 Year
  Sex: Male

DRUGS (5)
  1. VITAMIN B-12 [Concomitant]
  2. ALIMTA [Suspect]
     Route: 042
  3. BEVACIZUMAB [Concomitant]
  4. FOLIC ACID [Concomitant]
  5. CARBOPLATIN [Concomitant]

REACTIONS (2)
  - BLOOD BILIRUBIN INCREASED [None]
  - JAUNDICE [None]
